FAERS Safety Report 13647693 (Version 2)
Quarter: 2017Q3

REPORT INFORMATION
  Report Type: Report from Study
  Country: US (occurrence: US)
  Receive Date: 20170613
  Receipt Date: 20170730
  Transmission Date: 20171127
  Serious: Yes (Other)
  Sender: FDA-Public Use
  Company Number: US-AMGEN-USASL2017086941

PATIENT
  Age: 77 Year
  Sex: Male

DRUGS (1)
  1. REPATHA [Suspect]
     Active Substance: EVOLOCUMAB
     Indication: HYPERCHOLESTEROLAEMIA
     Dosage: 420 MG, UNK
     Route: 065

REACTIONS (7)
  - Incontinence [Unknown]
  - Dementia Alzheimer^s type [Not Recovered/Not Resolved]
  - Drug dose omission [Unknown]
  - Drug effect incomplete [Unknown]
  - Cardiac arrest [Unknown]
  - Respiratory disorder [Unknown]
  - Hydrocephalus [Unknown]
